FAERS Safety Report 6979210-5 (Version None)
Quarter: 2010Q3

REPORT INFORMATION
  Report Type: 
  Country: None (occurrence: None)
  Receive Date: 20100908
  Receipt Date: 20100824
  Transmission Date: 20110219
  Serious: Yes (Other)
  Sender: FDA-Public Use
  Company Number: B0623387A

PATIENT
  Age: 36 Year
  Sex: Female

DRUGS (10)
  1. COMBIVIR (FORMULATION UNKNOWN) (COMBIVIR) (GENERIC) [Suspect]
     Indication: HIV INFECTION
  2. LOPINAIVR + RITONAVIR (FORMULATION UNKNOWN) (LOPINAVIR + RITONAVIR) [Suspect]
     Indication: HIV INFECTION
  3. AZITHROMYCIN [Suspect]
     Indication: PNEUMONIA PRIMARY ATYPICAL
  4. PREDNISONE [Suspect]
     Indication: PNEUMONIA PRIMARY ATYPICAL
  5. LEXIVA [Suspect]
     Indication: HIV INFECTION
  6. EMTRICITABINE [Suspect]
     Indication: HIV INFECTION
  7. BETAMETHASONE [Suspect]
     Indication: PRENATAL CARE
  8. PREDNISOLONE [Suspect]
  9. LEVO ISOMETHADONE HCL SOL [Suspect]
  10. MEPRON [Suspect]

REACTIONS (8)
  - ASTHENIA [None]
  - DRUG EXPOSURE DURING PREGNANCY [None]
  - FATIGUE [None]
  - HEPATOTOXICITY [None]
  - INDUCED LABOUR [None]
  - LACTIC ACIDOSIS [None]
  - METABOLIC ACIDOSIS [None]
  - PNEUMONIA PRIMARY ATYPICAL [None]
